FAERS Safety Report 18700750 (Version 1)
Quarter: 2021Q1

REPORT INFORMATION
  Report Type: Spontaneous
  Country: US (occurrence: US)
  Receive Date: 20210105
  Receipt Date: 20210105
  Transmission Date: 20210419
  Serious: No
  Sender: FDA-Public Use
  Company Number: US-ALLERGAN-2005300US

PATIENT
  Sex: Male

DRUGS (1)
  1. PREDNISOLONE ACETATE, 1.0% [Suspect]
     Active Substance: PREDNISOLONE ACETATE
     Indication: PRODUCT USED FOR UNKNOWN INDICATION
     Dosage: UNK
     Route: 065

REACTIONS (5)
  - Product contamination physical [Unknown]
  - Product physical consistency issue [Unknown]
  - Liquid product physical issue [Unknown]
  - Poor quality product administered [Unknown]
  - Foreign body sensation in eyes [Unknown]
